FAERS Safety Report 12838020 (Version 1)
Quarter: 2016Q4

REPORT INFORMATION
  Report Type: Spontaneous
  Country: DE (occurrence: DE)
  Receive Date: 20161012
  Receipt Date: 20161012
  Transmission Date: 20170207
  Serious: Yes (Hospitalization)
  Sender: FDA-Public Use
  Company Number: DE-ACCORD-044755

PATIENT
  Age: 76 Year
  Sex: Male
  Weight: 65 kg

DRUGS (7)
  1. PANTOPRAZOLE [Concomitant]
     Active Substance: PANTOPRAZOLE SODIUM
  2. METHOTREXATE. [Suspect]
     Active Substance: METHOTREXATE
     Indication: RHEUMATOID ARTHRITIS
  3. ARCOXIA [Interacting]
     Active Substance: ETORICOXIB
     Indication: ANALGESIC THERAPY
     Dates: start: 20160815, end: 20160822
  4. TAMSULOSIN/TAMSULOSIN HYDROCHLORIDE [Concomitant]
  5. PREDNISOLONE. [Concomitant]
     Active Substance: PREDNISOLONE
  6. ENALAPRIL [Concomitant]
     Active Substance: ENALAPRIL
  7. BISOPROLOL [Concomitant]
     Active Substance: BISOPROLOL

REACTIONS (2)
  - Drug interaction [Unknown]
  - Blood creatinine increased [Recovering/Resolving]

NARRATIVE: CASE EVENT DATE: 20160816
